FAERS Safety Report 7997911 (Version 3)
Quarter: 2012Q4

REPORT INFORMATION
  Report Type: 
  Country: CA (occurrence: CA)
  Receive Date: 20110620
  Receipt Date: 20121111
  Transmission Date: 20130627
  Serious: Yes (Death, Hospitalization, Other)
  Sender: FDA-Public Use
  Company Number: PHMT2005CA00819

PATIENT
  Sex: Male

DRUGS (9)
  1. SANDOSTATIN LAR [Suspect]
     Indication: CARCINOID SYNDROME
     Dosage: 20 mg, every 4 weeks
     Dates: start: 20040928
  2. SANDOSTATIN LAR [Suspect]
     Dosage: 40 mg IM, every 4 weeks
  3. SANDOSTATIN LAR [Suspect]
     Dosage: 20 mg
     Dates: start: 20060508
  4. SANDOSTATIN LAR [Suspect]
     Dosage: 30 mg, every 4 weeks
  5. SANDOSTATIN LAR [Suspect]
     Dosage: 50 mg, every 4 weeks
  6. SANDOSTATIN LAR [Suspect]
     Dosage: 60 mg, QMO
     Route: 030
     Dates: end: 20090202
  7. DIOVAN [Suspect]
  8. CHEMOTHERAPEUTICS,OTHER [Concomitant]
     Dates: start: 20060501
  9. CHEMOTHERAPEUTICS,OTHER [Concomitant]
     Dosage: 1 DF, Another cycle
     Dates: start: 20061115

REACTIONS (18)
  - Condition aggravated [Fatal]
  - Carcinoid syndrome [Not Recovered/Not Resolved]
  - Flushing [Not Recovered/Not Resolved]
  - Diarrhoea [Not Recovered/Not Resolved]
  - Nausea [Unknown]
  - Abdominal distension [Not Recovered/Not Resolved]
  - Fatigue [Unknown]
  - Hypertension [Unknown]
  - Hyperhidrosis [Unknown]
  - Malaise [Unknown]
  - Injection site reaction [Unknown]
  - Insomnia [Unknown]
  - Irritable bowel syndrome [Unknown]
  - Nasopharyngitis [Unknown]
  - Heart rate increased [Unknown]
  - Flatulence [Unknown]
  - Asthenia [Unknown]
  - Abdominal pain [Unknown]
